FAERS Safety Report 23483188 (Version 1)
Quarter: 2024Q1

REPORT INFORMATION
  Report Type: Spontaneous
  Country: HU (occurrence: HU)
  Receive Date: 20240205
  Receipt Date: 20240205
  Transmission Date: 20240409
  Serious: Yes (Other)
  Sender: FDA-Public Use
  Company Number: HU-BAYER-2024A016716

PATIENT
  Sex: Male

DRUGS (2)
  1. XOFIGO [Suspect]
     Active Substance: RADIUM RA-223 DICHLORIDE
     Dosage: UNK
  2. RADIATION THERAPY [Concomitant]
     Active Substance: RADIATION THERAPY
     Dosage: UNK

REACTIONS (3)
  - Spinal pain [None]
  - Central nervous system lesion [None]
  - Muscular weakness [None]
